FAERS Safety Report 4980742-X (Version None)
Quarter: 2006Q2

REPORT INFORMATION
  Report Type: 
  Country: None (occurrence: None)
  Receive Date: 20060424
  Receipt Date: 20050901
  Transmission Date: 20061013
  Serious: Yes (Hospitalization, Disabling)
  Sender: FDA-Public Use
  Company Number: US-MERCK-0509USA00403

PATIENT
  Age: 68 Year
  Sex: Female
  Weight: 89 kg

DRUGS (4)
  1. VIOXX [Suspect]
     Indication: ARTHRALGIA
     Route: 048
     Dates: start: 20000124, end: 20040927
  2. VIOXX [Suspect]
     Route: 048
     Dates: start: 20000124, end: 20040927
  3. VIOXX [Suspect]
     Indication: OSTEOARTHRITIS
     Route: 048
     Dates: start: 20000124, end: 20040927
  4. VIOXX [Suspect]
     Route: 048
     Dates: start: 20000124, end: 20040927

REACTIONS (3)
  - ANGINA PECTORIS [None]
  - MYOCARDIAL INFARCTION [None]
  - SWELLING [None]
